FAERS Safety Report 17041500 (Version 1)
Quarter: 2019Q4

REPORT INFORMATION
  Report Type: Other
  Country: DE (occurrence: DE)
  Receive Date: 20191118
  Receipt Date: 20191118
  Transmission Date: 20200122
  Serious: Yes (Life-Threatening, Hospitalization, Other)
  Sender: FDA-Public Use
  Company Number: DE-ASTELLAS-2019US045143

PATIENT
  Age: 85 Year
  Sex: Male
  Weight: 64 kg

DRUGS (1)
  1. XTANDI [Suspect]
     Active Substance: ENZALUTAMIDE
     Indication: PROSTATE CANCER
     Route: 048
     Dates: start: 201904, end: 20191028

REACTIONS (3)
  - Delirium [Recovered/Resolved]
  - Delusion [Unknown]
  - Cognitive disorder [Unknown]

NARRATIVE: CASE EVENT DATE: 201910
